FAERS Safety Report 25935915 (Version 1)
Quarter: 2025Q4

REPORT INFORMATION
  Report Type: Spontaneous
  Country: CN (occurrence: CN)
  Receive Date: 20251017
  Receipt Date: 20251017
  Transmission Date: 20260118
  Serious: Yes (Other)
  Sender: COHERUS
  Company Number: CN-SHANGHAI JUNSHI BIOSCIENCES CO., LTD.-CN2025016055

PATIENT

DRUGS (12)
  1. TORIPALIMAB [Suspect]
     Active Substance: TORIPALIMAB
     Indication: Transitional cell cancer of the renal pelvis and ureter
     Dosage: 240 MG, SINGLE
     Route: 041
     Dates: start: 20250912, end: 20250912
  2. TORIPALIMAB [Suspect]
     Active Substance: TORIPALIMAB
     Dosage: 240 MG, SINGLE
     Route: 041
     Dates: start: 20251004, end: 20251004
  3. CARBOPLATIN [Suspect]
     Active Substance: CARBOPLATIN
     Indication: Transitional cell cancer of the renal pelvis and ureter
     Dosage: 400 MG, SINGLE
     Route: 041
     Dates: start: 20250912, end: 20250912
  4. CARBOPLATIN [Suspect]
     Active Substance: CARBOPLATIN
     Dosage: 400 MG, SINGLE
     Route: 041
     Dates: start: 20251004, end: 20251004
  5. GEMCITABINE HYDROCHLORIDE [Suspect]
     Active Substance: GEMCITABINE HYDROCHLORIDE
     Indication: Transitional cell cancer of the renal pelvis and ureter
     Dosage: 1.6 G, SINGLE
     Dates: start: 20250912, end: 20250912
  6. GEMCITABINE HYDROCHLORIDE [Suspect]
     Active Substance: GEMCITABINE HYDROCHLORIDE
     Dosage: 1.6 G, SINGLE
     Route: 041
     Dates: start: 20251004, end: 20251004
  7. SODIUM CHLORIDE [Concomitant]
     Active Substance: SODIUM CHLORIDE
     Indication: Medication dilution
     Dosage: 100 ML, SINGLE, SOLVENT OF GEMCITABINE HYDROCHLORIDE
     Route: 041
     Dates: start: 20250912, end: 20250912
  8. SODIUM CHLORIDE [Concomitant]
     Active Substance: SODIUM CHLORIDE
     Dosage: 100 ML, SINGLE, SOLVENT OF TUO YI
     Route: 041
     Dates: start: 20250912, end: 20250912
  9. SODIUM CHLORIDE [Concomitant]
     Active Substance: SODIUM CHLORIDE
     Dosage: 100 ML, SINGLE, SOLVENT OF GEMCITABINE HYDROCHLORIDE
     Route: 041
     Dates: start: 20250912, end: 20250912
  10. SODIUM CHLORIDE [Concomitant]
     Active Substance: SODIUM CHLORIDE
     Dosage: 100 ML, SINGLE, SOLVENT OF TUO YI
     Route: 041
     Dates: start: 20251004, end: 20251004
  11. DEXTROSE [Concomitant]
     Active Substance: DEXTROSE MONOHYDRATE
     Indication: Medication dilution
     Dosage: 500 ML, SINGLE, SOLVENT OF CARBOPLATIN
     Route: 041
     Dates: start: 20250912, end: 20250912
  12. DEXTROSE [Concomitant]
     Active Substance: DEXTROSE MONOHYDRATE
     Dosage: 500 ML, SINGLE, SOLVENT OF CARBOPLATIN
     Route: 041
     Dates: start: 20251004, end: 20251004

REACTIONS (1)
  - Myelosuppression [Recovering/Resolving]

NARRATIVE: CASE EVENT DATE: 20251002
